FAERS Safety Report 24785004 (Version 1)
Quarter: 2024Q4

REPORT INFORMATION
  Report Type: Spontaneous
  Country: CA (occurrence: CA)
  Receive Date: 20241228
  Receipt Date: 20241228
  Transmission Date: 20250114
  Serious: Yes (Other)
  Sender: CELLTRION
  Company Number: CA-CELLTRION INC.-2024CA032466

PATIENT

DRUGS (1)
  1. BEVACIZUMAB [Suspect]
     Active Substance: BEVACIZUMAB
     Indication: Macular degeneration
     Route: 050

REACTIONS (4)
  - Blindness [Unknown]
  - Hypoacusis [Unknown]
  - Off label use [Unknown]
  - Intentional product use issue [Unknown]
